FAERS Safety Report 20050183 (Version 1)
Quarter: 2021Q4

REPORT INFORMATION
  Report Type: Spontaneous
  Country: IT (occurrence: IT)
  Receive Date: 20211109
  Receipt Date: 20211109
  Transmission Date: 20220303
  Serious: Yes (Hospitalization)
  Sender: FDA-Public Use
  Company Number: IT-PFIZER INC-202101531789

PATIENT
  Age: 31 Year
  Sex: Male

DRUGS (1)
  1. INFLIXIMAB [Suspect]
     Active Substance: INFLIXIMAB
     Indication: Colitis
     Dosage: 400 MG, CYCLIC
     Route: 042
     Dates: start: 20211015, end: 20211015

REACTIONS (3)
  - Nausea [Not Recovered/Not Resolved]
  - Dyspepsia [Not Recovered/Not Resolved]
  - Hepatitis acute [Not Recovered/Not Resolved]

NARRATIVE: CASE EVENT DATE: 20211018
